FAERS Safety Report 5296736-3 (Version None)
Quarter: 2007Q2

REPORT INFORMATION
  Report Type: 
  Country: None (occurrence: None)
  Receive Date: 20070413
  Receipt Date: 20070403
  Transmission Date: 20071010
  Serious: Yes (Other)
  Sender: FDA-Public Use
  Company Number: FR-PFIZER INC-2007026746

PATIENT
  Age: 39 Year
  Sex: Female

DRUGS (2)
  1. TRIFLUCAN [Suspect]
     Route: 048
  2. LANSOPRAZOLE [Concomitant]

REACTIONS (1)
  - PHOTOSENSITIVITY REACTION [None]
